FAERS Safety Report 14832836 (Version 3)
Quarter: 2019Q2

REPORT INFORMATION
  Report Type: Spontaneous
  Country: US (occurrence: US)
  Receive Date: 20180501
  Receipt Date: 20190626
  Transmission Date: 20190711
  Serious: Yes (Other)
  Sender: FDA-Public Use
  Company Number: US-BAYER-2018-082348

PATIENT
  Age: 77 Year
  Sex: Female

DRUGS (1)
  1. DR. SCHOLLS CORN REMOVERS [Suspect]
     Active Substance: SALICYLIC ACID
     Dosage: UNK

REACTIONS (10)
  - Cellulitis [Unknown]
  - Erythema [Unknown]
  - Gait disturbance [Unknown]
  - Product use complaint [None]
  - Product monitoring error [None]
  - Contraindicated product administered [None]
  - Application site necrosis [Unknown]
  - Peripheral swelling [Unknown]
  - Skin warm [Unknown]
  - Pain in extremity [Unknown]
